FAERS Safety Report 13755429 (Version 1)
Quarter: 2017Q3

REPORT INFORMATION
  Report Type: Spontaneous
  Country: US (occurrence: US)
  Receive Date: 20170714
  Receipt Date: 20170714
  Transmission Date: 20171127
  Serious: Yes (Hospitalization)
  Sender: FDA-Public Use
  Company Number: US-LUNDBECK-DKLU2033951

PATIENT
  Age: 40 Year
  Sex: Female

DRUGS (2)
  1. NORTHERA [Suspect]
     Active Substance: DROXIDOPA
     Indication: AUTONOMIC NEUROPATHY
     Route: 048
     Dates: start: 201703
  2. NORTHERA [Suspect]
     Active Substance: DROXIDOPA
     Indication: CIRCULATORY COLLAPSE

REACTIONS (1)
  - Autonomic nervous system imbalance [Unknown]

NARRATIVE: CASE EVENT DATE: 20170623
